FAERS Safety Report 7556904-4 (Version None)
Quarter: 2011Q2

REPORT INFORMATION
  Report Type: 
  Country: None (occurrence: None)
  Receive Date: 20110620
  Receipt Date: 20110613
  Transmission Date: 20111010
  Serious: Yes (Hospitalization)
  Sender: FDA-Public Use
  Company Number: TR-TEVA-286866ISR

PATIENT
  Sex: Female

DRUGS (1)
  1. CEFACLOR [Suspect]
     Indication: BRONCHITIS

REACTIONS (4)
  - LINEAR IGA DISEASE [None]
  - AUTOIMMUNE THYROIDITIS [None]
  - HAEMOLYTIC ANAEMIA [None]
  - THROMBOCYTOSIS [None]
